FAERS Safety Report 9829061 (Version 1)
Quarter: 2014Q1

REPORT INFORMATION
  Report Type: Spontaneous
  Country: JP (occurrence: JP)
  Receive Date: 20140119
  Receipt Date: 20140119
  Transmission Date: 20141002
  Serious: Yes (Other)
  Sender: FDA-Public Use
  Company Number: JP-ASTRAZENECA-2014SE03737

PATIENT
  Sex: 0

DRUGS (2)
  1. SEROQUEL [Suspect]
     Dosage: 25 MG OR 50 MG DAILY
     Route: 048
  2. SEROQUEL [Suspect]
     Dosage: 150-200 MG DAILY
     Route: 048

REACTIONS (1)
  - Renal impairment [Not Recovered/Not Resolved]
